FAERS Safety Report 8913660 (Version 6)
Quarter: 2013Q2

REPORT INFORMATION
  Report Type: Spontaneous
  Country: US (occurrence: None)
  Receive Date: 20121114
  Receipt Date: 20130503
  Transmission Date: 20140414
  Serious: Yes (Other)
  Sender: FDA-Public Use
  Company Number: US-2012-11616

PATIENT
  Age: 45 Year
  Sex: Female

DRUGS (1)
  1. OPC-41061 [Suspect]
     Indication: CONGENITAL CYSTIC KIDNEY DISEASE
     Route: 048
     Dates: start: 20120105, end: 20121105

REACTIONS (8)
  - Kidney enlargement [None]
  - Renal cyst [None]
  - Blood bilirubin increased [None]
  - Blood alkaline phosphatase increased [None]
  - Aspartate aminotransferase increased [None]
  - Alanine aminotransferase increased [None]
  - Hepatic cyst [None]
  - Blood creatinine increased [None]
